FAERS Safety Report 18073282 (Version 1)
Quarter: 2020Q3

REPORT INFORMATION
  Report Type: Spontaneous
  Country: FR (occurrence: FR)
  Receive Date: 20200727
  Receipt Date: 20200727
  Transmission Date: 20201103
  Serious: Yes (Death, Other)
  Sender: FDA-Public Use
  Company Number: FR-MYLANLABS-2020M1067453

PATIENT
  Age: 35 Year
  Sex: Male
  Weight: 62 kg

DRUGS (1)
  1. ARIXTRA [Suspect]
     Active Substance: FONDAPARINUX SODIUM
     Indication: ERYSIPELAS
     Dosage: UNK
     Route: 058

REACTIONS (2)
  - Haemorrhagic stroke [Fatal]
  - Off label use [Unknown]

NARRATIVE: CASE EVENT DATE: 20200625
